FAERS Safety Report 19578599 (Version 1)
Quarter: 2021Q3

REPORT INFORMATION
  Report Type: Spontaneous
  Country: NL (occurrence: NL)
  Receive Date: 20210720
  Receipt Date: 20210720
  Transmission Date: 20211014
  Serious: Yes (Congenital Anomaly)
  Sender: FDA-Public Use
  Company Number: NL-SUN PHARMACEUTICAL INDUSTRIES LTD-2021RR-304925

PATIENT
  Weight: .6 kg

DRUGS (5)
  1. PREGABALIN. [Suspect]
     Active Substance: PREGABALIN
     Indication: PSYCHOTIC DISORDER
     Dosage: 150 MILLIGRAM, BID, 2 DD 150 MG
     Route: 050
  2. ZOPLICLON (ZOPICLONE) [Suspect]
     Active Substance: ZOPICLONE
     Indication: POST-TRAUMATIC STRESS DISORDER
     Dosage: 7.5 MILLIGRAM, DAILY, 1 DD 7,5 MG
     Route: 050
  3. HALDOL [Suspect]
     Active Substance: HALOPERIDOL
     Indication: PSYCHOTIC DISORDER
     Dosage: 4 MILLIGRAM, DAILY, 1 DD 4 MG
     Route: 050
  4. PAROXETINE TABLET 20MG / BRAND NAME NOT SPECIFIEDPAROXETINE TABLET ... [Suspect]
     Active Substance: PAROXETINE
     Indication: DEPRESSION
     Dosage: 20 MILLIGRAM, DAILY, 1 DD 20 MG
     Route: 050
  5. METHYLFENIDAAT CAPSULE MGA 10MG / BRAND NAME NOT SPECIFIEDMETHYLFEN... [Suspect]
     Active Substance: METHYLPHENIDATE HYDROCHLORIDE
     Indication: ATTENTION DEFICIT HYPERACTIVITY DISORDER
     Dosage: 10 MILLIGRAM, 1DOSE/3HOURS, 7 DD 10 MG
     Route: 050

REACTIONS (4)
  - Maternal exposure during pregnancy [Unknown]
  - Ectopia cordis [Not Recovered/Not Resolved]
  - Abdominal wall anomaly [Not Recovered/Not Resolved]
  - Spina bifida [Not Recovered/Not Resolved]

NARRATIVE: CASE EVENT DATE: 20210612
